FAERS Safety Report 16840077 (Version 1)
Quarter: 2019Q3

REPORT INFORMATION
  Report Type: Spontaneous
  Country: US (occurrence: US)
  Receive Date: 20190731
  Receipt Date: 20190731
  Transmission Date: 20191005
  Serious: Yes (Disabling, Other)
  Sender: FDA-Public Use
  Company Number: None

PATIENT
  Age: 52 Year
  Sex: Female
  Weight: 127.01 kg

DRUGS (6)
  1. FAMOTIDINE. [Concomitant]
     Active Substance: FAMOTIDINE
  2. PANTOPRAZOLE SODIUM DELAYED RELEASE TABLETS [Suspect]
     Active Substance: PANTOPRAZOLE SODIUM
     Indication: ULCER HAEMORRHAGE
     Dosage: ?          QUANTITY:1 DF DOSAGE FORM;?
     Route: 048
     Dates: start: 20161020, end: 20190710
  3. MULTIVITAMIN [Concomitant]
     Active Substance: VITAMINS
  4. PANTOPRAZOLE SODIUM DELAYED RELEASE TABLETS [Suspect]
     Active Substance: PANTOPRAZOLE SODIUM
     Indication: GASTROINTESTINAL DISORDER
     Dosage: ?          QUANTITY:1 DF DOSAGE FORM;?
     Route: 048
     Dates: start: 20161020, end: 20190710
  5. POTASSIUM [Concomitant]
     Active Substance: POTASSIUM
  6. CALTIUM [Concomitant]

REACTIONS (1)
  - Cataract [None]

NARRATIVE: CASE EVENT DATE: 20181221
